FAERS Safety Report 11750727 (Version 1)
Quarter: 2015Q4

REPORT INFORMATION
  Report Type: Spontaneous
  Country: US (occurrence: None)
  Receive Date: 20151117
  Receipt Date: 20151117
  Transmission Date: 20160304
  Serious: Yes (Hospitalization)
  Sender: FDA-Public Use
  Company Number: None

PATIENT
  Age: 2 Year
  Sex: Male
  Weight: 15.5 kg

DRUGS (5)
  1. CYTARABINE. [Suspect]
     Active Substance: CYTARABINE
     Dates: end: 20151022
  2. DAUNORUBICIN [Suspect]
     Active Substance: DAUNORUBICIN
     Dates: end: 20151105
  3. METHOTREXATE [Suspect]
     Active Substance: METHOTREXATE
     Dates: end: 20151029
  4. ONCASPAR [Suspect]
     Active Substance: PEGASPARGASE
     Dates: end: 20151025
  5. VINCRISTINE SULFATE. [Suspect]
     Active Substance: VINCRISTINE SULFATE
     Dates: end: 20151105

REACTIONS (6)
  - Anaemia [None]
  - Tachycardia [None]
  - Neutropenia [None]
  - Thrombocytopenia [None]
  - Blood pressure decreased [None]
  - Pyrexia [None]

NARRATIVE: CASE EVENT DATE: 20151106
